FAERS Safety Report 23804195 (Version 1)
Quarter: 2024Q2

REPORT INFORMATION
  Report Type: Report from Study
  Country: US (occurrence: US)
  Receive Date: 20240501
  Receipt Date: 20240501
  Transmission Date: 20240716
  Serious: Yes (Other)
  Sender: FDA-Public Use
  Company Number: US-002147023-NVSC2024US092034

PATIENT
  Age: 56 Year

DRUGS (1)
  1. MYFORTIC [Suspect]
     Active Substance: MYCOPHENOLATE SODIUM
     Indication: Product used for unknown indication
     Dosage: 360 MG
     Route: 048
     Dates: start: 20210324

REACTIONS (2)
  - Diabetes mellitus [Unknown]
  - Liver disorder [Unknown]

NARRATIVE: CASE EVENT DATE: 20210324
